FAERS Safety Report 9896950 (Version 3)
Quarter: 2014Q2

REPORT INFORMATION
  Report Type: Spontaneous
  Country: US (occurrence: US)
  Receive Date: 20140214
  Receipt Date: 20140430
  Transmission Date: 20141212
  Serious: Yes (Other)
  Sender: FDA-Public Use
  Company Number: US-BIOGENIDEC-2014BI012853

PATIENT
  Age: 59 Year
  Sex: Female

DRUGS (8)
  1. TYSABRI [Suspect]
     Indication: MULTIPLE SCLEROSIS
     Route: 042
     Dates: start: 20070214
  2. VAGIFEM [Concomitant]
     Dosage: DOSE UNIT:10
  3. EFUDEX [Concomitant]
  4. OMEGA-3 FATTY ACIDS [Concomitant]
  5. MAGNESIUM CITRATE [Concomitant]
     Route: 048
  6. ATIVAN [Concomitant]
  7. ADVIL [Concomitant]
  8. KELP [Concomitant]
     Route: 048

REACTIONS (3)
  - Intraductal proliferative breast lesion [Recovered/Resolved]
  - Breast pain [Unknown]
  - Prescribed underdose [Unknown]
